FAERS Safety Report 20730478 (Version 1)
Quarter: 2022Q2

REPORT INFORMATION
  Report Type: Spontaneous
  Country: ES (occurrence: ES)
  Receive Date: 20220420
  Receipt Date: 20220420
  Transmission Date: 20220721
  Serious: Yes (Life-Threatening, Hospitalization)
  Sender: FDA-Public Use
  Company Number: None

PATIENT
  Age: 65 Year
  Sex: Male

DRUGS (13)
  1. VIMPAT [Suspect]
     Active Substance: LACOSAMIDE
     Indication: Status epilepticus
     Dosage: 200 MILLIGRAM, 2X/DAY (BID)
     Route: 042
     Dates: start: 20220301, end: 20220311
  2. BISOPROLOL [Suspect]
     Active Substance: BISOPROLOL
     Indication: Atrial fibrillation
     Dosage: 2.5 MILLIGRAM, ONCE DAILY (QD)
     Route: 048
     Dates: start: 20200908
  3. SIMVASTATIN [Concomitant]
     Active Substance: SIMVASTATIN
     Indication: Dyslipidaemia
     Dosage: 40 MILLIGRAM, ONCE DAILY (QD)
     Route: 048
     Dates: start: 20120103
  4. AMLODIPINE BESYLATE\OLMESARTAN MEDOXOMIL [Concomitant]
     Active Substance: AMLODIPINE BESYLATE\OLMESARTAN MEDOXOMIL
     Indication: Hypertension
     Dosage: 40MG/10MG, 1 DOSAGE FORM, ONCE DAILY (QD)
     Route: 048
     Dates: start: 20220224
  5. XARELTO [Concomitant]
     Active Substance: RIVAROXABAN
     Indication: Atrial fibrillation
     Dosage: 20 MILLIGRAM, ONCE DAILY (QD)
     Route: 048
     Dates: start: 20210909
  6. LORMETAZEPAM [Concomitant]
     Active Substance: LORMETAZEPAM
     Indication: Product used for unknown indication
     Dosage: 1 MILLIGRAM, ONCE DAILY (QD)
     Route: 048
     Dates: start: 20210816
  7. FLUTICASONE FUROATE\VILANTEROL TRIFENATATE [Concomitant]
     Active Substance: FLUTICASONE FUROATE\VILANTEROL TRIFENATATE
     Indication: Bronchial hyperreactivity
     Dosage: 1 DOSAGE FORM, ONCE DAILY (QD)
     Route: 055
     Dates: start: 20201014
  8. OSVICAL D [Concomitant]
     Indication: Product used for unknown indication
     Dosage: 1 DOSAGE FORM, ONCE DAILY (QD)
     Route: 048
     Dates: start: 20220124
  9. METFORMIN HYDROCHLORIDE [Concomitant]
     Active Substance: METFORMIN HYDROCHLORIDE
     Indication: Diabetes mellitus
     Dosage: 850 MILLIGRAM, 2X/DAY (BID)
     Route: 048
     Dates: start: 20220125
  10. LEVETIRACETAM [Concomitant]
     Active Substance: LEVETIRACETAM
     Indication: Status epilepticus
     Dosage: UNK
     Route: 042
     Dates: start: 20220228
  11. PARIZAC [OMEPRAZOLE] [Concomitant]
     Indication: Product used for unknown indication
     Dosage: 20 MILLIGRAM, ONCE DAILY (QD)
     Route: 048
     Dates: start: 20181113
  12. DOXAZOSIN MESYLATE [Concomitant]
     Active Substance: DOXAZOSIN MESYLATE
     Indication: Product used for unknown indication
     Dosage: 4 MILLIGRAM, ONCE DAILY (QD)
     Route: 048
     Dates: start: 20200730
  13. FUROSEMIDE [Concomitant]
     Active Substance: FUROSEMIDE
     Indication: Product used for unknown indication
     Dosage: 40 MILLIGRAM, EV 2 DAYS (QOD)
     Route: 048
     Dates: start: 20200908

REACTIONS (2)
  - Atrioventricular block complete [Recovered/Resolved]
  - Product use in unapproved indication [Unknown]

NARRATIVE: CASE EVENT DATE: 20220301
